FAERS Safety Report 6691677-9 (Version None)
Quarter: 2010Q2

REPORT INFORMATION
  Report Type: 
  Country: None (occurrence: None)
  Receive Date: 20100422
  Receipt Date: 20090223
  Transmission Date: 20101027
  Serious: No
  Sender: FDA-Public Use
  Company Number: US-ASTRAZENECA-2009UW04938

PATIENT
  Age: 66 Year
  Sex: Female
  Weight: 81.6 kg

DRUGS (4)
  1. METOPROLOL SUCCINATE [Suspect]
     Route: 048
     Dates: start: 20090216
  2. METOPROLOL SUCCINATE [Suspect]
     Route: 048
  3. CRESTOR [Concomitant]
     Route: 048
  4. LOPRESSOR [Concomitant]

REACTIONS (6)
  - COUGH [None]
  - DYSPNOEA [None]
  - FATIGUE [None]
  - OEDEMA PERIPHERAL [None]
  - PAIN [None]
  - VISION BLURRED [None]
